FAERS Safety Report 15153061 (Version 5)
Quarter: 2023Q2

REPORT INFORMATION
  Report Type: Spontaneous
  Country: US (occurrence: US)
  Receive Date: 20180717
  Receipt Date: 20230608
  Transmission Date: 20230721
  Serious: Yes (Other)
  Sender: FDA-Public Use
  Company Number: US-PFIZER INC-2018286636

PATIENT
  Age: 80 Year
  Sex: Female

DRUGS (2)
  1. METHOTREXATE SODIUM [Suspect]
     Active Substance: METHOTREXATE SODIUM
     Dosage: 20 MG, WEEKLY
  2. XELJANZ XR [Concomitant]
     Active Substance: TOFACITINIB CITRATE
     Indication: Rheumatoid arthritis
     Dosage: UNK
     Dates: start: 2018

REACTIONS (7)
  - Lymphocyte count decreased [Unknown]
  - Anaemia [Unknown]
  - Drug ineffective [Unknown]
  - Inflammatory marker increased [Not Recovered/Not Resolved]
  - Cough [Unknown]
  - Respiratory disorder [Unknown]
  - Hand deformity [Unknown]
